FAERS Safety Report 25125518 (Version 1)
Quarter: 2025Q1

REPORT INFORMATION
  Report Type: Report from Study
  Country: AU (occurrence: AU)
  Receive Date: 20250326
  Receipt Date: 20250326
  Transmission Date: 20250409
  Serious: Yes (Death)
  Sender: PFIZER
  Company Number: AU-PFIZER INC-2014012883

PATIENT
  Age: 52 Year
  Sex: Male

DRUGS (5)
  1. LAMOTRIGINE [Suspect]
     Active Substance: LAMOTRIGINE
  2. QUETIAPINE FUMARATE [Suspect]
     Active Substance: QUETIAPINE FUMARATE
  3. DILTIAZEM HYDROCHLORIDE [Suspect]
     Active Substance: DILTIAZEM HYDROCHLORIDE
  4. DULOXETINE [Suspect]
     Active Substance: DULOXETINE
  5. ALCOHOL [Suspect]
     Active Substance: ALCOHOL

REACTIONS (3)
  - Intentional self-injury [Fatal]
  - Toxicity to various agents [Fatal]
  - Arteriosclerosis coronary artery [Fatal]
